FAERS Safety Report 10993173 (Version 1)
Quarter: 2015Q2

REPORT INFORMATION
  Report Type: Other
  Country: US (occurrence: US)
  Receive Date: 20150407
  Receipt Date: 20150407
  Transmission Date: 20150821
  Serious: No
  Sender: FDA-Public Use
  Company Number: US-LUPIN PHARMACEUTICALS INC.-E2B_00003171

PATIENT
  Age: 20 Year
  Sex: Male
  Weight: 90.8 kg

DRUGS (1)
  1. QUETIAPINE FUMARATE TABLETS 50 MG [Suspect]
     Active Substance: QUETIAPINE FUMARATE
     Indication: BIPOLAR DISORDER
     Dates: start: 201501

REACTIONS (3)
  - Depression [Recovered/Resolved]
  - Product substitution issue [Recovered/Resolved]
  - Drug ineffective [Unknown]

NARRATIVE: CASE EVENT DATE: 20150129
